FAERS Safety Report 8073999-2 (Version None)
Quarter: 2012Q1

REPORT INFORMATION
  Report Type: 
  Country: None (occurrence: None)
  Receive Date: 20120126
  Receipt Date: 20120116
  Transmission Date: 20120608
  Serious: Yes (Other)
  Sender: FDA-Public Use
  Company Number: JP-ELI_LILLY_AND_COMPANY-JP201108005859

PATIENT
  Age: 65 Year
  Sex: Female

DRUGS (4)
  1. FOLIC ACID [Concomitant]
  2. ALIMTA [Suspect]
     Indication: LUNG ADENOCARCINOMA STAGE IV
     Dosage: 500 MG/M2, OTHER
     Route: 042
  3. VITAMIN B-12 [Concomitant]
  4. CISPLATIN [Concomitant]
     Indication: LUNG ADENOCARCINOMA STAGE IV
     Dosage: 75 MG/M2, OTHER

REACTIONS (1)
  - TYMPANIC MEMBRANE PERFORATION [None]
